FAERS Safety Report 11574629 (Version 1)
Quarter: 2015Q3

REPORT INFORMATION
  Report Type: Spontaneous
  Country: US (occurrence: US)
  Receive Date: 20150916
  Receipt Date: 20150916
  Transmission Date: 20151125
  Serious: No
  Sender: FDA-Public Use
  Company Number: US-ELI_LILLY_AND_COMPANY-US200911002791

PATIENT
  Age: 78 Year
  Sex: Female

DRUGS (2)
  1. FORTEO [Suspect]
     Active Substance: TERIPARATIDE
     Dosage: 20 UG, DAILY (1/D)
     Dates: start: 20091015, end: 2009
  2. FORTEO [Suspect]
     Active Substance: TERIPARATIDE
     Indication: RIB FRACTURE
     Dosage: 20 UG, DAILY (1/D)
     Dates: start: 20090821, end: 20091014

REACTIONS (5)
  - Injection site bruising [Unknown]
  - Sleep disorder [Unknown]
  - Incorrect product storage [Recovered/Resolved]
  - Pain [Unknown]
  - Skin haemorrhage [Unknown]

NARRATIVE: CASE EVENT DATE: 2009
